FAERS Safety Report 5153086-3 (Version None)
Quarter: 2006Q4

REPORT INFORMATION
  Report Type: 
  Country: None (occurrence: None)
  Receive Date: 20061117
  Receipt Date: 20061109
  Transmission Date: 20070319
  Serious: Yes (Hospitalization)
  Sender: FDA-Public Use
  Company Number: 2006UW23424

PATIENT
  Age: 23 Year
  Sex: Male
  Weight: 63.5 kg

DRUGS (2)
  1. SEROQUEL [Suspect]
     Indication: BIPOLAR DISORDER
     Route: 048
  2. OTHER MEDICATIONS (NOT SPECIFIED) [Concomitant]

REACTIONS (2)
  - DIZZINESS [None]
  - LIVER DISORDER [None]
